FAERS Safety Report 7984076-0 (Version None)
Quarter: 2011Q4

REPORT INFORMATION
  Report Type: 
  Country: None (occurrence: None)
  Receive Date: 20111216
  Receipt Date: 20111213
  Transmission Date: 20120403
  Serious: No
  Sender: FDA-Public Use
  Company Number: US-PFIZER INC-2011277713

PATIENT
  Sex: Male
  Weight: 73 kg

DRUGS (4)
  1. ATRIPLA [Concomitant]
     Dosage: UNK
  2. CHANTIX [Suspect]
     Indication: SMOKING CESSATION THERAPY
     Dosage: 0.5 MG, 1X/DAY
     Route: 048
     Dates: start: 20111102, end: 20111101
  3. LOVAZA [Concomitant]
     Indication: BLOOD CHOLESTEROL INCREASED
     Dosage: UNK
  4. CHANTIX [Suspect]
     Dosage: 1 MG, 2X/DAY
     Route: 048
     Dates: start: 20111101

REACTIONS (5)
  - HYPERHIDROSIS [None]
  - DYSGEUSIA [None]
  - NAUSEA [None]
  - VOMITING [None]
  - HOT FLUSH [None]
